FAERS Safety Report 6527536-1 (Version None)
Quarter: 2010Q1

REPORT INFORMATION
  Report Type: 
  Country: None (occurrence: None)
  Receive Date: 20100105
  Receipt Date: 20091118
  Transmission Date: 20100710
  Serious: Yes (Hospitalization)
  Sender: FDA-Public Use
  Company Number: BR-ROCHE-508324

PATIENT
  Sex: Male
  Weight: 7.8 kg

DRUGS (16)
  1. ROCEPHIN [Suspect]
     Indication: SEPSIS
     Dosage: INDICATION: DIARRHEA
     Route: 065
     Dates: start: 19971119, end: 19971129
  2. VIRACEPT [Suspect]
     Route: 048
     Dates: start: 20070416, end: 20070528
  3. VIRACEPT [Suspect]
     Route: 048
     Dates: start: 19980925, end: 19981201
  4. VIRACEPT [Suspect]
     Route: 048
     Dates: start: 20070529, end: 20070611
  5. VIRACEPT [Suspect]
     Dosage: DOSE CHANGED
     Route: 048
     Dates: start: 20070704, end: 20070715
  6. INVIRASE [Suspect]
     Route: 048
     Dates: start: 19981214, end: 20011201
  7. INVIRASE [Suspect]
     Route: 048
     Dates: start: 20020115
  8. BACTRIM [Suspect]
     Indication: PROPHYLAXIS
     Route: 065
     Dates: end: 19970101
  9. RITONAVIR [Concomitant]
     Route: 048
  10. LAMIVUDINE [Concomitant]
     Route: 048
  11. AZT [Concomitant]
     Route: 048
  12. VITAMIN A [Concomitant]
  13. VITAMINE D [Concomitant]
  14. ZIDOVUDINE [Concomitant]
  15. NORVIR [Concomitant]
  16. IMMUNE GLOBULIN IV NOS [Concomitant]

REACTIONS (46)
  - APHTHOUS STOMATITIS [None]
  - BRONCHOSPASM [None]
  - CANDIDIASIS [None]
  - CD4 LYMPHOCYTES DECREASED [None]
  - CHEST PAIN [None]
  - CONSTIPATION [None]
  - CONVULSION [None]
  - DECREASED APPETITE [None]
  - DEPRESSED MOOD [None]
  - DEVELOPMENTAL DELAY [None]
  - DIARRHOEA [None]
  - DYSPHONIA [None]
  - EAR INFECTION [None]
  - EAR PAIN [None]
  - ENCEPHALOPATHY [None]
  - EYE INFECTION [None]
  - FEEDING DISORDER [None]
  - FLATULENCE [None]
  - GASTROINTESTINAL DISORDER [None]
  - GINGIVAL DISORDER [None]
  - GROWTH RETARDATION [None]
  - HEAT RASH [None]
  - HEPATOMEGALY [None]
  - HYPERAEMIA [None]
  - HYPOTONIA [None]
  - IMPETIGO [None]
  - INFLUENZA [None]
  - MALAISE [None]
  - NASAL CONGESTION [None]
  - NEUROPATHY PERIPHERAL [None]
  - OCULAR HYPERAEMIA [None]
  - PAPILLOMA [None]
  - PHARYNGITIS [None]
  - PSYCHOMOTOR HYPERACTIVITY [None]
  - RASH [None]
  - RASH PAPULAR [None]
  - REPRODUCTIVE TRACT DISORDER [None]
  - SEBORRHOEIC DERMATITIS [None]
  - SEPSIS [None]
  - SINUSITIS [None]
  - TACHYCARDIA [None]
  - TONSILLITIS [None]
  - TRACHEOBRONCHITIS [None]
  - VOMITING [None]
  - WEIGHT DECREASED [None]
  - WHITE BLOOD CELL COUNT DECREASED [None]
